FAERS Safety Report 10613894 (Version 1)
Quarter: 2014Q4

REPORT INFORMATION
  Report Type: Spontaneous
  Country: BR (occurrence: BR)
  Receive Date: 20141128
  Receipt Date: 20141128
  Transmission Date: 20150529
  Serious: Yes (Hospitalization, Other)
  Sender: FDA-Public Use
  Company Number: BR-PFIZER INC-2014323120

PATIENT
  Age: 81 Year
  Sex: Female
  Weight: 72 kg

DRUGS (4)
  1. DETRUSITOL LA [Suspect]
     Active Substance: TOLTERODINE TARTRATE
     Indication: URINARY INCONTINENCE
     Dosage: 1 CAPSULE OF 4 MG AFTER DINNER
     Route: 048
     Dates: start: 20140508
  2. DIGESAN [Concomitant]
     Indication: DYSPEPSIA
     Dosage: 30 GTT, 3X/DAY
     Dates: start: 201406
  3. DONAREN [Concomitant]
     Active Substance: TRAZODONE HYDROCHLORIDE
     Indication: SLEEP DISORDER
     Dosage: 0.5 DF, DAILY
     Dates: start: 201408
  4. SERTRALINE [Concomitant]
     Active Substance: SERTRALINE HYDROCHLORIDE
     Indication: DEPRESSION
     Dosage: 3 TABLETS, DAILY (IN THE MORNING)
     Dates: start: 201405

REACTIONS (5)
  - Oesophageal disorder [Unknown]
  - Dysphagia [Unknown]
  - Condition aggravated [Unknown]
  - Oesophageal food impaction [Unknown]
  - Intentional product misuse [Unknown]

NARRATIVE: CASE EVENT DATE: 2014
